FAERS Safety Report 5740117-2 (Version None)
Quarter: 2008Q2

REPORT INFORMATION
  Report Type: 
  Country: None (occurrence: None)
  Receive Date: 20080516
  Receipt Date: 20080505
  Transmission Date: 20081010
  Serious: Yes (Death, Other)
  Sender: FDA-Public Use
  Company Number: HQWYE447727JUL04

PATIENT
  Sex: Female
  Weight: 90.8 kg

DRUGS (2)
  1. PREMPRO [Suspect]
     Dosage: UNKNOWN
     Route: 048
     Dates: start: 19940301, end: 20001201
  2. CONJUGATED ESTROGENS [Suspect]

REACTIONS (1)
  - OVARIAN CANCER [None]
